FAERS Safety Report 9391736 (Version 3)
Quarter: 2013Q4

REPORT INFORMATION
  Report Type: Spontaneous
  Country: JP (occurrence: JP)
  Receive Date: 20130709
  Receipt Date: 20131203
  Transmission Date: 20140711
  Serious: No
  Sender: FDA-Public Use
  Company Number: JP-GLAXOSMITHKLINE-B0905667A

PATIENT
  Age: 36 Year
  Sex: Female

DRUGS (4)
  1. PAXIL [Suspect]
     Indication: DEPRESSIVE SYMPTOM
     Dosage: 40MG PER DAY
     Route: 048
     Dates: start: 200804
  2. DEPAS [Concomitant]
     Indication: ANXIETY
     Route: 048
     Dates: start: 200804
  3. ERISPAN [Concomitant]
     Indication: HYPERVENTILATION
     Route: 048
  4. DESYREL [Concomitant]
     Indication: INSOMNIA
     Dosage: 25MG PER DAY
     Route: 048

REACTIONS (6)
  - Somnolence [Recovering/Resolving]
  - Nightmare [Recovering/Resolving]
  - Electroencephalogram abnormal [Recovering/Resolving]
  - Malaise [Unknown]
  - Poor quality sleep [Unknown]
  - Poor quality sleep [Recovering/Resolving]
